FAERS Safety Report 11930177 (Version 1)
Quarter: 2016Q1

REPORT INFORMATION
  Report Type: Spontaneous
  Country: None (occurrence: US)
  Receive Date: 20160120
  Receipt Date: 20160120
  Transmission Date: 20160526
  Serious: Yes (Hospitalization)
  Sender: FDA-Public Use
  Company Number: US-MERZ NORTH AMERICA, INC.-16MRZ-00038

PATIENT
  Age: 73 Year
  Sex: Male

DRUGS (4)
  1. CUVPOSA [Suspect]
     Active Substance: GLYCOPYRROLATE
     Indication: SECRETION DISCHARGE
     Dosage: 1 TEASPOON PER DAY
  2. UNSPECIFIED CONSTIPATION MED [Concomitant]
  3. RILUTEK [Concomitant]
     Active Substance: RILUZOLE
  4. UNSPECIFIED NAUSEA MEDICATION [Concomitant]

REACTIONS (2)
  - Constipation [None]
  - Abdominal pain [None]
